FAERS Safety Report 5753497-9 (Version None)
Quarter: 2008Q2

REPORT INFORMATION
  Report Type: 
  Country: None (occurrence: None)
  Receive Date: 20080530
  Receipt Date: 20080521
  Transmission Date: 20081010
  Serious: Yes (Disabling)
  Sender: FDA-Public Use
  Company Number: FR-AMGEN-UK281413

PATIENT
  Sex: Female

DRUGS (7)
  1. NEULASTA [Suspect]
     Indication: CHEMOTHERAPY
     Route: 058
  2. TAMOXIFEN CITRATE [Concomitant]
     Route: 065
     Dates: start: 20080215
  3. HERCEPTIN [Concomitant]
     Route: 042
     Dates: start: 20080218, end: 20080312
  4. POLARAMINE [Concomitant]
     Route: 042
  5. ZOPHREN [Concomitant]
     Route: 065
  6. PRIMPERAN TAB [Concomitant]
     Route: 065
  7. SOLU-MEDROL [Concomitant]
     Route: 065

REACTIONS (1)
  - HYPOTHYROIDISM [None]
